FAERS Safety Report 20262495 (Version 5)
Quarter: 2022Q2

REPORT INFORMATION
  Report Type: Report from Study
  Country: JP (occurrence: JP)
  Receive Date: 20211231
  Receipt Date: 20220408
  Transmission Date: 20220720
  Serious: Yes (Hospitalization)
  Sender: FDA-Public Use
  Company Number: JP-CHUGAI-2021021770

PATIENT
  Age: 57 Year
  Sex: Female
  Weight: 49 kg

DRUGS (14)
  1. BEVACIZUMAB [Suspect]
     Active Substance: BEVACIZUMAB
     Indication: Breast cancer
     Dosage: 840 MILLIGRAM, ONCE/2WEEKS
     Route: 041
     Dates: start: 20210510
  2. ATEZOLIZUMAB [Suspect]
     Active Substance: ATEZOLIZUMAB
     Indication: Breast cancer
     Dosage: 840 MILLIGRAM
     Route: 041
     Dates: start: 20210510
  3. PACLITAXEL [Suspect]
     Active Substance: PACLITAXEL
     Indication: Breast cancer
     Dosage: UNK
     Route: 041
     Dates: start: 20210510
  4. PACLITAXEL [Suspect]
     Active Substance: PACLITAXEL
     Dosage: UNK
     Route: 041
  5. URSODIOL [Concomitant]
     Active Substance: URSODIOL
     Indication: Gastrointestinal hypomotility
     Route: 048
     Dates: start: 20210510
  6. LOXOPROFEN [Concomitant]
     Active Substance: LOXOPROFEN
     Indication: Analgesic therapy
  7. LOXOPROFEN [Concomitant]
     Active Substance: LOXOPROFEN
     Indication: Prophylaxis
  8. REBAMIPIDE [Concomitant]
     Active Substance: REBAMIPIDE
     Indication: Gastritis prophylaxis
     Route: 048
  9. CALONAL [Concomitant]
     Active Substance: ACETAMINOPHEN
  10. ZOLEDRONIC ACID [Concomitant]
     Active Substance: ZOLEDRONIC ACID
     Indication: Prophylaxis
  11. SODIUM GUALENATE [Concomitant]
     Active Substance: SODIUM GUALENATE
     Dates: start: 20210517
  12. PARAFFIN [Concomitant]
     Active Substance: PARAFFIN
     Indication: Prophylaxis
     Route: 061
     Dates: start: 20210621
  13. METOCLOPRAMIDE [Concomitant]
     Active Substance: METOCLOPRAMIDE
     Indication: Prophylaxis
     Route: 048
     Dates: start: 20210810
  14. GLYCOSAMINOGLYCANS [Concomitant]
     Active Substance: GLYCOSAMINOGLYCANS
     Indication: Prophylaxis
     Route: 061
     Dates: start: 20210906

REACTIONS (3)
  - Cholangitis [Recovering/Resolving]
  - Cardiac failure [Recovering/Resolving]
  - Cholangitis acute [Recovered/Resolved]

NARRATIVE: CASE EVENT DATE: 20211005
